FAERS Safety Report 5450384-0 (Version None)
Quarter: 2007Q3

REPORT INFORMATION
  Report Type: 
  Country: None (occurrence: None)
  Receive Date: 20070912
  Receipt Date: 20070831
  Transmission Date: 20080115
  Serious: Yes (Hospitalization)
  Sender: FDA-Public Use
  Company Number: DE-PFIZER INC-2007073192

PATIENT
  Sex: Female

DRUGS (3)
  1. VFEND [Suspect]
  2. COTRIM [Concomitant]
  3. CYCLOSPORINE [Concomitant]

REACTIONS (2)
  - HEPATIC FAILURE [None]
  - POISONING [None]
